FAERS Safety Report 5113497-9 (Version None)
Quarter: 2006Q3

REPORT INFORMATION
  Report Type: 
  Country: None (occurrence: None)
  Receive Date: 20060921
  Receipt Date: 20060908
  Transmission Date: 20061208
  Serious: Yes (Hospitalization, Other)
  Sender: FDA-Public Use
  Company Number: 2006110700

PATIENT
  Age: 33 Year
  Sex: Female

DRUGS (2)
  1. CYTOTEC [Suspect]
     Indication: ABORTION INDUCED
     Dosage: (ONCE), VAGINAL
     Route: 067
     Dates: start: 20060727, end: 20060727
  2. SYNTHROID [Concomitant]

REACTIONS (9)
  - DISSEMINATED INTRAVASCULAR COAGULATION [None]
  - DRUG ADMINISTRATION ERROR [None]
  - FALL [None]
  - FURUNCLE [None]
  - PALLOR [None]
  - PROCEDURAL COMPLICATION [None]
  - SHOCK [None]
  - STAPHYLOCOCCAL INFECTION [None]
  - VAGINAL HAEMORRHAGE [None]
